FAERS Safety Report 21649091 (Version 1)
Quarter: 2022Q4

REPORT INFORMATION
  Report Type: Spontaneous
  Country: US (occurrence: US)
  Receive Date: 20221128
  Receipt Date: 20221128
  Transmission Date: 20230113
  Serious: Yes (Other)
  Sender: FDA-Public Use
  Company Number: US-GLAXOSMITHKLINE-US2022AMR176828

PATIENT
  Sex: Female

DRUGS (1)
  1. ZEJULA [Suspect]
     Active Substance: NIRAPARIB
     Indication: Ovarian cancer
     Dosage: 200 MG, QD (AT NIGHT)
     Dates: start: 20221101, end: 20221124

REACTIONS (3)
  - Thrombocytopenia [Unknown]
  - Epistaxis [Unknown]
  - Feeling abnormal [Unknown]
